FAERS Safety Report 20327436 (Version 1)
Quarter: 2022Q1

REPORT INFORMATION
  Report Type: Spontaneous
  Country: US (occurrence: US)
  Receive Date: 20220112
  Receipt Date: 20220112
  Transmission Date: 20220423
  Serious: No
  Sender: FDA-Public Use
  Company Number: MIQ-10132021-1180(V1)

PATIENT

DRUGS (1)
  1. VYLEESI [Suspect]
     Active Substance: BREMELANOTIDE ACETATE
     Indication: Product used for unknown indication
     Dosage: UNK UNK, UNK
     Route: 058

REACTIONS (11)
  - Illness [Unknown]
  - Chills [Unknown]
  - Heart rate increased [Unknown]
  - Insomnia [Unknown]
  - Hangover [Unknown]
  - Paraesthesia [Unknown]
  - Cough [Unknown]
  - Dizziness [Unknown]
  - Headache [Unknown]
  - Flushing [Unknown]
  - Nausea [Unknown]
